FAERS Safety Report 8780278 (Version 1)
Quarter: 2012Q4

REPORT INFORMATION
  Report Type: Spontaneous
  Country: SG (occurrence: None)
  Receive Date: 20120829
  Receipt Date: 20120829
  Transmission Date: 20130627
  Serious: Yes (Other)
  Sender: FDA-Public Use
  Company Number: FK201202449

PATIENT
  Age: 25 Year
  Sex: Female

DRUGS (12)
  1. DEXAMETHASONE SODIUM PHOSPHATES [Suspect]
     Indication: ACUTE LYMPHOCYTIC LEUKEMIA
     Dosage: day 1 to day 21
  2. DEXAMETHASONE SODIUM PHOSPHATES [Suspect]
     Indication: ACUTE LYMPHOCYTIC LEUKEMIA
     Dosage: on days 22-24
  3. DEXAMETHASONE SODIUM PHOSPHATES [Suspect]
     Indication: ACUTE LYMPHOCYTIC LEUKEMIA
     Dosage: days 25 - 27
  4. DEXAMETHASONE SODIUM PHOSPHATES [Suspect]
     Indication: ACUTE LYMPHOCYTIC LEUKEMIA
     Dosage: on days 28-30
  5. L-ASPARAGINASE [Suspect]
     Dosage: on days 8, 11, 15, 18
  6. LAMIVUDINE (LAMIVUDINE) [Concomitant]
  7. CYCLOPHOSPHAMIDE (CYCLOPHOSPHAMIDE) [Concomitant]
  8. VINCRISTINE (VINCRISTINE) [Concomitant]
  9. DOXORUBICIN (DOXORUBICIN) [Concomitant]
  10. METHOTREXATE (METHOTREXATE) [Concomitant]
  11. CYTARABINE (CYTARABINE) [Concomitant]
  12. GANCICLOVIR (GANICLOVIR) [Concomitant]

REACTIONS (9)
  - Hypertriglyceridaemia [None]
  - Abdominal pain [None]
  - Hepatic steatosis [None]
  - Cytomegalovirus hepatitis [None]
  - Hepatitis B core antibody positive [None]
  - Blood cholesterol increased [None]
  - Anaemia [None]
  - Thrombocytopenia [None]
  - Blood glucose decreased [None]
